FAERS Safety Report 7709002-0 (Version None)
Quarter: 2011Q3

REPORT INFORMATION
  Report Type: 
  Country: None (occurrence: None)
  Receive Date: 20110825
  Receipt Date: 20110818
  Transmission Date: 20111222
  Serious: Yes (Death, Other)
  Sender: FDA-Public Use
  Company Number: US-BAYER-200940708NA

PATIENT
  Age: 58 Year
  Sex: Female
  Weight: 63.492 kg

DRUGS (19)
  1. HEPARIN [Concomitant]
     Dosage: 35000/
     Route: 042
  2. TRASYLOL [Suspect]
     Indication: CORONARY ARTERY BYPASS
     Dosage: 200 ML FOLLOWED BY 50 ML / HOUR
     Route: 042
     Dates: start: 20051130
  3. PROPRANOLOL [Concomitant]
     Indication: PRODUCT USED FOR UNKNOWN INDICATION
     Dosage: 20 MG, QD
     Dates: start: 20040101
  4. PROTAMINE [Concomitant]
     Dosage: 500 MG, UNK
     Route: 042
     Dates: start: 20051130
  5. NALOXONE W/PENTAZOCINE [Concomitant]
     Indication: PRODUCT USED FOR UNKNOWN INDICATION
     Dosage: UNK
     Dates: start: 20051025
  6. CEPHALEXIN [Concomitant]
     Indication: PRODUCT USED FOR UNKNOWN INDICATION
     Dosage: 500 MG, QID
     Dates: start: 20051110, end: 20051120
  7. NEO SYNEPHRIN [Concomitant]
     Dosage: 100
     Route: 042
     Dates: start: 20051130
  8. LORAZEPAM [Concomitant]
     Indication: PRODUCT USED FOR UNKNOWN INDICATION
     Dosage: 1 MG, UNK
     Dates: start: 20050301
  9. DOPAMINE HCL [Concomitant]
     Dosage: UNK
     Route: 042
     Dates: start: 20051130
  10. ZITHROMAX [Concomitant]
     Indication: PRODUCT USED FOR UNKNOWN INDICATION
     Dosage: 250 MG Z-PAK, UNK
     Dates: start: 20051102
  11. ANCEF [Concomitant]
     Dosage: 1 GRAM/1 GRAM
     Route: 042
  12. NITROGLYCERIN [Concomitant]
     Indication: PRODUCT USED FOR UNKNOWN INDICATION
     Dosage: 0.4 MG, UNK
     Dates: start: 20050930
  13. VERSED [Concomitant]
     Dosage: 3/2/5 MG
     Route: 042
  14. PRIMIDONE [Concomitant]
     Indication: PRODUCT USED FOR UNKNOWN INDICATION
     Dosage: 250 MG, QD
     Dates: start: 20040101
  15. ACETYLSALICYLIC ACID SRT [Concomitant]
     Route: 048
  16. INSULIN HUMAN [Concomitant]
     Dosage: 10CC/HOUR
     Route: 042
     Dates: start: 20051130
  17. NITROGLYCERIN [Concomitant]
     Dosage: TITRATE
     Route: 042
     Dates: start: 20051130
  18. ALBUMIN (HUMAN) [Concomitant]
     Dosage: 200 ML, UNK
     Route: 042
     Dates: start: 20051130
  19. LASIX [Concomitant]
     Dosage: 20/20
     Route: 042
     Dates: start: 20051130

REACTIONS (13)
  - ANHEDONIA [None]
  - STRESS [None]
  - UNEVALUABLE EVENT [None]
  - PAIN [None]
  - RENAL INJURY [None]
  - INJURY [None]
  - RENAL IMPAIRMENT [None]
  - ANXIETY [None]
  - DEATH [None]
  - FEAR [None]
  - MULTI-ORGAN FAILURE [None]
  - RENAL FAILURE [None]
  - EMOTIONAL DISTRESS [None]
